FAERS Safety Report 4751016-7 (Version None)
Quarter: 2005Q3

REPORT INFORMATION
  Report Type: 
  Country: None (occurrence: None)
  Receive Date: 20050824
  Receipt Date: 20050817
  Transmission Date: 20060218
  Serious: Yes (Hospitalization)
  Sender: FDA-Public Use
  Company Number: US-BOEHRINGER INGELHEIM PHARMACEUTICALS, INC.-2005-BP-14240BP

PATIENT
  Sex: Male

DRUGS (21)
  1. COMBIVENT [Suspect]
     Indication: ASTHMA
     Route: 055
     Dates: start: 20020101
  2. STRATTERA [Concomitant]
     Indication: ATTENTION DEFICIT/HYPERACTIVITY DISORDER
     Dates: start: 20040801
  3. ULTRAM [Concomitant]
     Indication: OSTEOARTHRITIS
     Dates: start: 20040224
  4. NUTRAFLEX [Concomitant]
     Indication: MEDICAL DIET
     Dosage: 12 TABS QD
     Dates: start: 20040301
  5. RHINOCORT [Concomitant]
     Indication: HYPERSENSITIVITY
     Dosage: 1 SPRAY/ NOSTRIL
     Route: 045
     Dates: start: 20020101
  6. ALLERGY INJECTIONS [Concomitant]
     Indication: HYPERSENSITIVITY
     Dates: start: 20020101
  7. ANDROGEL [Concomitant]
     Indication: HORMONE REPLACEMENT THERAPY
     Dates: start: 20030801
  8. FLOMAX [Concomitant]
     Indication: BENIGN PROSTATIC HYPERPLASIA
     Dates: start: 20020101
  9. PREDNISONE [Concomitant]
     Indication: OSTEOARTHRITIS
     Dates: start: 20040901
  10. SYNTHROID [Concomitant]
     Indication: HYPOTHYROIDISM
     Dates: start: 20050401
  11. PROTONIX [Concomitant]
     Indication: GASTROOESOPHAGEAL REFLUX DISEASE
     Dates: start: 20040801
  12. AVALIDE [Concomitant]
     Indication: PULMONARY HYPERTENSION
     Dates: start: 20050701
  13. FUROSEMIDE [Concomitant]
     Indication: PULMONARY HYPERTENSION
     Dates: start: 20050701
  14. MUCINEX [Concomitant]
     Indication: ASTHMA
     Dates: start: 20050201
  15. METOPROLOL [Concomitant]
     Indication: PULMONARY HYPERTENSION
     Dates: start: 20050701
  16. AMBIEN [Concomitant]
     Indication: FIBROMYALGIA
     Dates: start: 20040901, end: 20050501
  17. SYNTHROID [Concomitant]
     Dates: start: 19980101, end: 20050101
  18. ASTELIN [Concomitant]
     Indication: HYPERSENSITIVITY
     Dosage: 2 SPRAYS/NOSTRIL
     Dates: start: 20020101
  19. ORAL KELATION [Concomitant]
     Indication: MEDICAL DIET
     Dosage: 4 TABS
     Dates: start: 20030101, end: 20050501
  20. CHLORETTA [Concomitant]
     Indication: MEDICAL DIET
     Dosage: 4 TABS
     Dates: start: 20040801, end: 20050201
  21. CELEBREX [Concomitant]
     Indication: OSTEOARTHRITIS
     Dates: start: 20040901, end: 20041001

REACTIONS (4)
  - CHEST PAIN [None]
  - DIZZINESS [None]
  - KNEE ARTHROPLASTY [None]
  - PULMONARY EMBOLISM [None]
